FAERS Safety Report 9379438 (Version 1)
Quarter: 2013Q3

REPORT INFORMATION
  Report Type: Spontaneous
  Country: AU (occurrence: AU)
  Receive Date: 20130702
  Receipt Date: 20130702
  Transmission Date: 20140515
  Serious: Yes (Death)
  Sender: FDA-Public Use
  Company Number: AU-PFIZER INC-2013191765

PATIENT
  Age: 22 Year
  Sex: Male

DRUGS (1)
  1. CHAMPIX [Suspect]
     Dosage: 1 MG, UNK
     Dates: start: 20130403

REACTIONS (3)
  - Completed suicide [Fatal]
  - Abnormal behaviour [Fatal]
  - Insomnia [Fatal]
